FAERS Safety Report 13561928 (Version 2)
Quarter: 2017Q3

REPORT INFORMATION
  Report Type: Spontaneous
  Country: US (occurrence: US)
  Receive Date: 20170518
  Receipt Date: 20170711
  Transmission Date: 20171127
  Serious: Yes (Hospitalization, Other)
  Sender: FDA-Public Use
  Company Number: US-ASTRAZENECA-2017SE52419

PATIENT
  Age: 88 Year
  Sex: Female
  Weight: 65.8 kg

DRUGS (1)
  1. SYMBICORT [Suspect]
     Active Substance: BUDESONIDE\FORMOTEROL FUMARATE DIHYDRATE
     Indication: ASTHMA
     Dosage: 160/4.5 MCG TWO INHALATIONS  TWO TIMES A DAY
     Route: 055

REACTIONS (12)
  - Vertigo [Unknown]
  - Visual impairment [Unknown]
  - Device issue [Unknown]
  - Drug dose omission [Unknown]
  - Product use issue [Unknown]
  - Malaise [Unknown]
  - Extrasystoles [Unknown]
  - Fall [Unknown]
  - Cardiac arrest [Unknown]
  - Head injury [Unknown]
  - Asthma [Unknown]
  - Asthenia [Unknown]

NARRATIVE: CASE EVENT DATE: 2017
